FAERS Safety Report 21380713 (Version 1)
Quarter: 2022Q3

REPORT INFORMATION
  Report Type: Spontaneous
  Country: BR (occurrence: BR)
  Receive Date: 20220927
  Receipt Date: 20220927
  Transmission Date: 20221026
  Serious: Yes (Life-Threatening, Hospitalization, Other)
  Sender: FDA-Public Use
  Company Number: BR-Merz Pharmaceuticals GmbH-22-02825

PATIENT
  Sex: Female

DRUGS (3)
  1. BOTULINUM TOXIN NOS [Suspect]
     Active Substance: BOTULINUM TOXIN NOS
     Indication: Product used for unknown indication
     Dates: start: 20220830, end: 20220830
  2. RADIESSE [Concomitant]
     Active Substance: TRIBASIC CALCIUM PHOSPHATE
     Indication: Skin cosmetic procedure
     Route: 030
     Dates: start: 20220830, end: 20220830
  3. BOTOX [Concomitant]
     Active Substance: ONABOTULINUMTOXINA

REACTIONS (4)
  - Cellulitis [Recovering/Resolving]
  - Nodule [Recovering/Resolving]
  - Pyrexia [Unknown]
  - Device use error [Unknown]

NARRATIVE: CASE EVENT DATE: 20220801
